FAERS Safety Report 7562860-5 (Version None)
Quarter: 2011Q2

REPORT INFORMATION
  Report Type: 
  Country: None (occurrence: None)
  Receive Date: 20110622
  Receipt Date: 20110610
  Transmission Date: 20111010
  Serious: Yes (Hospitalization, Disabling, Other)
  Sender: FDA-Public Use
  Company Number: US-ROCHE-762817

PATIENT
  Sex: Male
  Weight: 59 kg

DRUGS (5)
  1. AMNESTEEM [Suspect]
     Indication: ACNE
     Route: 065
     Dates: start: 20051107, end: 20060501
  2. IBUPROFEN [Concomitant]
     Dates: start: 20070101
  3. SOTRET [Suspect]
     Indication: ACNE
     Route: 065
     Dates: start: 20051107, end: 20060501
  4. ACCUTANE [Suspect]
     Indication: ACNE
     Route: 065
     Dates: start: 20051031, end: 20060501
  5. IBUPROFEN [Concomitant]
     Dates: start: 20050101

REACTIONS (11)
  - EMOTIONAL DISTRESS [None]
  - HAEMORRHOIDS [None]
  - SMALL INTESTINAL OBSTRUCTION [None]
  - CROHN'S DISEASE [None]
  - GASTROINTESTINAL INJURY [None]
  - COLITIS ULCERATIVE [None]
  - ANXIETY [None]
  - INFLAMMATORY BOWEL DISEASE [None]
  - DRY SKIN [None]
  - RASH [None]
  - IRRITABLE BOWEL SYNDROME [None]
